FAERS Safety Report 10030978 (Version 2)
Quarter: 2014Q1

REPORT INFORMATION
  Report Type: Spontaneous
  Country: AU (occurrence: AU)
  Receive Date: 20140324
  Receipt Date: 20140324
  Transmission Date: 20141002
  Serious: Yes (Hospitalization)
  Sender: FDA-Public Use
  Company Number: AU-ROCHE-1346997

PATIENT
  Age: 44 Year
  Sex: Male
  Weight: 133 kg

DRUGS (8)
  1. PEGASYS [Suspect]
     Indication: HEPATITIS C
     Route: 058
     Dates: start: 20131101
  2. RIBAVIRIN [Suspect]
     Indication: HEPATITIS C
     Route: 048
     Dates: start: 20131101
  3. INCIVO [Suspect]
     Indication: HEPATITIS C
     Route: 048
     Dates: start: 20131101, end: 20140124
  4. METFORMIN [Concomitant]
     Indication: DIABETES MELLITUS
     Route: 048
  5. DIAMICRON [Concomitant]
     Indication: DIABETES MELLITUS
     Route: 048
  6. NOVOMIX [Concomitant]
     Indication: DIABETES MELLITUS
     Route: 058
  7. SEROQUEL [Concomitant]
     Indication: BIPOLAR DISORDER
     Route: 048
  8. AVANZA [Concomitant]
     Indication: DEPRESSION
     Route: 048

REACTIONS (1)
  - Mental disorder [Not Recovered/Not Resolved]
